FAERS Safety Report 9528424 (Version 1)
Quarter: 2013Q3

REPORT INFORMATION
  Report Type: Spontaneous
  Country: GB (occurrence: GB)
  Receive Date: 20130917
  Receipt Date: 20130917
  Transmission Date: 20140515
  Serious: Yes (Hospitalization, Other)
  Sender: FDA-Public Use
  Company Number: GB-PFIZER INC-2013263735

PATIENT
  Age: 53 Year
  Sex: Male
  Weight: 230 kg

DRUGS (4)
  1. IBUPROFEN [Suspect]
     Indication: ARTHRALGIA
     Dosage: 400-800MG ONCE DAILY.
     Route: 048
     Dates: start: 201202, end: 20130827
  2. AMLODIPINE [Concomitant]
     Indication: HYPERTENSION
     Dosage: 10 MG, 1X/DAY
     Route: 048
  3. BISOPROLOL [Concomitant]
     Indication: HYPERTENSION
     Dosage: 10 MG, 1X/DAY
     Route: 048
  4. RAMIPRIL [Concomitant]
     Indication: HYPERTENSION
     Dosage: 10 MG, 1X/DAY
     Route: 048
     Dates: start: 201305, end: 201308

REACTIONS (3)
  - Gastric ulcer [Recovering/Resolving]
  - Duodenitis [Recovering/Resolving]
  - Melaena [Recovering/Resolving]
